FAERS Safety Report 21532008 (Version 1)
Quarter: 2022Q4

REPORT INFORMATION
  Report Type: Spontaneous
  Country: US (occurrence: US)
  Receive Date: 20221101
  Receipt Date: 20221101
  Transmission Date: 20230112
  Serious: No
  Sender: FDA-Public Use
  Company Number: US-AMGEN-USA-20200209911

PATIENT
  Sex: Female

DRUGS (7)
  1. OTEZLA [Suspect]
     Active Substance: APREMILAST
     Indication: Psoriasis
     Dosage: 30 MILLIGRAM
     Route: 065
  2. HYDROCORTISONE [Concomitant]
     Active Substance: HYDROCORTISONE
     Dosage: UNK
  3. TRICOR [Concomitant]
     Active Substance: FENOFIBRATE
     Dosage: UNK
  4. MONTELUKAST SODIUM [Concomitant]
     Active Substance: MONTELUKAST SODIUM
     Dosage: UNK
  5. ALLEGRA ALLERGY [Concomitant]
     Active Substance: FEXOFENADINE HYDROCHLORIDE
     Dosage: UNK
  6. SAIZEN [Concomitant]
     Active Substance: SOMATROPIN
     Dosage: UNK
  7. ZOCOR [Concomitant]
     Active Substance: SIMVASTATIN
     Dosage: UNK

REACTIONS (1)
  - Product dose omission issue [Unknown]
